FAERS Safety Report 5715669-9 (Version None)
Quarter: 2008Q2

REPORT INFORMATION
  Report Type: 
  Country: None (occurrence: None)
  Receive Date: 20080422
  Receipt Date: 20080413
  Transmission Date: 20081010
  Serious: Yes (Other)
  Sender: FDA-Public Use
  Company Number: 08H-163-0314153-00

PATIENT
  Age: 64 Year
  Sex: Female

DRUGS (2)
  1. CIPROFLOXACIN INJECTION, USP, 10 MG/ ML (CIPROFLOXACIN) [Suspect]
     Indication: URINARY TRACT INFECTION
  2. CLOZAPINE [Suspect]
     Indication: SCHIZOAFFECTIVE DISORDER

REACTIONS (5)
  - CONFUSIONAL STATE [None]
  - DRUG INTERACTION [None]
  - DRUG TOXICITY [None]
  - IRRITABILITY [None]
  - URINARY TRACT INFECTION [None]
